FAERS Safety Report 4543830-8 (Version None)
Quarter: 2005Q1

REPORT INFORMATION
  Report Type: 
  Country: None (occurrence: None)
  Receive Date: 20050103
  Receipt Date: 20030915
  Transmission Date: 20050727
  Serious: Yes (Death, Hospitalization)
  Sender: FDA-Public Use
  Company Number: GXKR2003US00553

PATIENT
  Age: 88 Year
  Sex: Female

DRUGS (3)
  1. SPIRONOLACTONE [Suspect]
     Indication: CARDIAC FAILURE CONGESTIVE
     Dosage: 25 MG, QD
  2. IRBESARTAN [Suspect]
     Dosage: 150 MG, QD
  3. POTASSIUM CHLORIDE [Concomitant]

REACTIONS (5)
  - CARDIAC ARREST [None]
  - DIARRHOEA [None]
  - DRUG INTERACTION [None]
  - HYPERKALAEMIA [None]
  - NODAL ARRHYTHMIA [None]
